FAERS Safety Report 5955643-0 (Version None)
Quarter: 2008Q4

REPORT INFORMATION
  Report Type: 
  Country: None (occurrence: None)
  Receive Date: 20081117
  Receipt Date: 20081105
  Transmission Date: 20090506
  Serious: Yes (Other)
  Sender: FDA-Public Use
  Company Number: SE-PFIZER INC-2008091618

PATIENT
  Sex: Female

DRUGS (3)
  1. ZOLOFT [Suspect]
     Indication: DEPRESSED MOOD
     Dates: start: 20080801
  2. SALURES [Concomitant]
     Indication: BLOOD PRESSURE INCREASED
  3. APROVEL [Concomitant]
     Indication: BLOOD PRESSURE INCREASED

REACTIONS (2)
  - INTRAOCULAR PRESSURE INCREASED [None]
  - VISUAL IMPAIRMENT [None]
